FAERS Safety Report 7233831 (Version 2)
Quarter: 2020Q3

REPORT INFORMATION
  Report Type: Spontaneous
  Country: None (occurrence: None)
  Receive Date: 20091210
  Receipt Date: 20130709
  Transmission Date: 20201104
  Serious: Yes (Hospitalization, Other)
  Sender: FDA-Public Use
  Company Number: AUR-APL-2009-01431

PATIENT
  Age: 57 Year
  Sex: Female

DRUGS (4)
  1. IBANDRONIC ACID. [Suspect]
     Active Substance: IBANDRONIC ACID
     Indication: OSTEOPOROSIS
     Dosage: 4 MOS BEFORE 1ST FRACT.
  2. ESOMEPRAZOLE. [Suspect]
     Active Substance: ESOMEPRAZOLE MAGNESIUM
     Indication: PRODUCT USED FOR UNKNOWN INDICATION
  3. ALENDRONIC ACID (ALENDRONIC ACID) [Suspect]
     Active Substance: ALENDRONIC ACID
     Indication: OSTEOPOROSIS
  4. CORTICOSTEROIDS [Suspect]
     Active Substance: CORTICOSTEROID NOS
     Indication: PRODUCT USED FOR UNKNOWN INDICATION
     Route: 048

REACTIONS (3)
  - Fall [None]
  - Impaired healing [None]
  - Femur fracture [None]
